FAERS Safety Report 7401375-1 (Version None)
Quarter: 2011Q2

REPORT INFORMATION
  Report Type: 
  Country: None (occurrence: None)
  Receive Date: 20110407
  Receipt Date: 20110404
  Transmission Date: 20111010
  Serious: Yes (Other)
  Sender: FDA-Public Use
  Company Number: GB-MERCK-1103GBR00117

PATIENT
  Age: 51 Year
  Sex: Female
  Weight: 109 kg

DRUGS (12)
  1. ATORVASTATIN [Concomitant]
     Route: 065
     Dates: start: 20101026
  2. CALCIUM CARBONATE [Concomitant]
     Route: 065
     Dates: start: 20110211
  3. GLICLAZIDE [Concomitant]
     Route: 065
     Dates: start: 20101026
  4. FLOXACILLIN [Concomitant]
     Route: 065
     Dates: start: 20110114, end: 20110119
  5. DOXAZOSIN MESYLATE [Concomitant]
     Route: 065
     Dates: start: 20101026
  6. CODEINE PHOSPHATE [Concomitant]
     Route: 065
     Dates: start: 20110204, end: 20110218
  7. JANUVIA [Suspect]
     Route: 048
     Dates: start: 20110107
  8. AMLODIPINE [Concomitant]
     Route: 065
     Dates: start: 20101126
  9. METFORMIN [Concomitant]
     Route: 065
     Dates: start: 20101026
  10. LIDOCAINE [Concomitant]
     Route: 065
     Dates: start: 20110107, end: 20110206
  11. AZELASTINE HYDROCHLORIDE [Concomitant]
     Route: 065
     Dates: start: 20110107, end: 20110112
  12. DEXAMETHASONE AND FRAMYCETIN SULFATE AND GRAMICIDIN [Concomitant]
     Route: 065
     Dates: start: 20110107, end: 20110112

REACTIONS (1)
  - MYALGIA [None]
